FAERS Safety Report 25202053 (Version 1)
Quarter: 2025Q2

REPORT INFORMATION
  Report Type: Spontaneous
  Country: CA (occurrence: CA)
  Receive Date: 20250416
  Receipt Date: 20250416
  Transmission Date: 20250717
  Serious: Yes (Death, Other)
  Sender: RANBAXY
  Company Number: CA-SUN PHARMACEUTICAL INDUSTRIES LTD-2025R1-503035

PATIENT
  Age: 65 Year
  Sex: Female

DRUGS (3)
  1. METHOTREXATE [Suspect]
     Active Substance: METHOTREXATE
     Indication: Psoriatic arthropathy
     Dosage: 12.5 MILLIGRAM, DAILY
     Route: 048
  2. METHOTREXATE [Suspect]
     Active Substance: METHOTREXATE
     Dosage: 12.5 MILLIGRAM, WEEKLY
     Route: 048
  3. FOLATE SODIUM [Concomitant]
     Active Substance: FOLATE SODIUM
     Indication: Psoriatic arthropathy
     Route: 065

REACTIONS (1)
  - Epidermal necrosis [Fatal]
